FAERS Safety Report 8785182 (Version 1)
Quarter: 2012Q4

REPORT INFORMATION
  Report Type: 
  Country: US (occurrence: US)
  Receive Date: 20120914
  Receipt Date: 20120914
  Transmission Date: 20130627
  Serious: No
  Sender: FDA-Public Use
  Company Number: US-PFIZER INC-2012226225

PATIENT
  Age: 84 Year
  Sex: Female

DRUGS (2)
  1. ATORVASTATIN CALCIUM [Suspect]
     Indication: BLOOD CHOLESTEROL INCREASED
     Dosage: 40 mg, UNK
     Route: 048
  2. ASPIRIN [Concomitant]
     Indication: ARTERIOSCLEROSIS
     Dosage: 325 mg, daily

REACTIONS (1)
  - Musculoskeletal pain [Unknown]
